FAERS Safety Report 7330395-0 (Version None)
Quarter: 2011Q1

REPORT INFORMATION
  Report Type: 
  Country: None (occurrence: None)
  Receive Date: 20110304
  Receipt Date: 20110223
  Transmission Date: 20110831
  Serious: No
  Sender: FDA-Public Use
  Company Number: US-BIOGENIDEC-2010BI016254

PATIENT
  Age: 60 Year
  Sex: Female

DRUGS (1)
  1. TYSABRI [Suspect]
     Indication: MULTIPLE SCLEROSIS
     Route: 042
     Dates: start: 20100309, end: 20101102

REACTIONS (5)
  - GAIT DISTURBANCE [None]
  - SLUGGISHNESS [None]
  - HERPES ZOSTER [None]
  - FATIGUE [None]
  - DRUG INEFFECTIVE [None]
